FAERS Safety Report 25546025 (Version 1)
Quarter: 2025Q3

REPORT INFORMATION
  Report Type: Spontaneous
  Country: US (occurrence: US)
  Receive Date: 20250712
  Receipt Date: 20250712
  Transmission Date: 20251021
  Serious: Yes (Death, Other)
  Sender: UNITED THERAPEUTICS
  Company Number: US-UNITED THERAPEUTICS-UNT-2025-023310

PATIENT
  Age: 8 Year
  Sex: Male

DRUGS (8)
  1. UNITUXIN [Suspect]
     Active Substance: DINUTUXIMAB
     Indication: Neuroblastoma
     Route: 041
  2. UNITUXIN [Suspect]
     Active Substance: DINUTUXIMAB
     Route: 041
  3. LORLATINIB [Suspect]
     Active Substance: LORLATINIB
     Indication: Neuroblastoma
  4. LORLATINIB [Suspect]
     Active Substance: LORLATINIB
     Indication: Anaplastic lymphoma kinase gene mutation
  5. NAXITAMAB [Suspect]
     Active Substance: NAXITAMAB
     Indication: Neuroblastoma
     Dosage: 2.25 MG/KG, QD [3 CYCLE]
     Route: 041
  6. NAXITAMAB [Suspect]
     Active Substance: NAXITAMAB
     Dosage: 2.25 MG/KG, QD
     Route: 041
  7. OXYGEN [Concomitant]
     Active Substance: OXYGEN
     Indication: Hypoxia
  8. OXYGEN [Concomitant]
     Active Substance: OXYGEN
     Indication: Wheezing

REACTIONS (6)
  - Neuroblastoma [Fatal]
  - Pulmonary toxicity [Recovered/Resolved]
  - Pyrexia [Recovered/Resolved]
  - Urticaria [Recovered/Resolved]
  - Pleural effusion [Recovered/Resolved]
  - Off label use [Recovered/Resolved]
